FAERS Safety Report 9438412 (Version 1)
Quarter: 2013Q3

REPORT INFORMATION
  Report Type: Spontaneous
  Country: US (occurrence: US)
  Receive Date: 20130802
  Receipt Date: 20130802
  Transmission Date: 20140515
  Serious: No
  Sender: FDA-Public Use
  Company Number: US-BRISTOL-MYERS SQUIBB COMPANY-17253642

PATIENT
  Age: 65 Year
  Sex: 0

DRUGS (6)
  1. COUMADIN [Suspect]
  2. DILANTIN [Concomitant]
  3. VITAMIN C [Concomitant]
  4. ZINC [Concomitant]
  5. VITAMIN E [Concomitant]
  6. VITAMIN D [Concomitant]

REACTIONS (1)
  - Epistaxis [Unknown]
